FAERS Safety Report 7449088-4 (Version None)
Quarter: 2011Q2

REPORT INFORMATION
  Report Type: 
  Country: None (occurrence: None)
  Receive Date: 20110502
  Receipt Date: 20101124
  Transmission Date: 20111010
  Serious: Yes (Disabling, Other)
  Sender: FDA-Public Use
  Company Number: US-BAYER-201030618NA

PATIENT
  Age: 52 Year
  Sex: Female
  Weight: 149 kg

DRUGS (21)
  1. PROHANCE [Suspect]
     Indication: ANGIOGRAM
     Dates: start: 20070511, end: 20070511
  2. EPOGEN [Concomitant]
     Dosage: UNK UNK, TIW
     Route: 058
  3. NORVASC [Concomitant]
     Dosage: 5 MG DAILY
     Route: 048
  4. ROCALTROL [Concomitant]
     Dosage: DAILY
     Route: 048
  5. IRON [Concomitant]
     Dosage: 350 MG DAILY
     Route: 048
  6. ASPIRIN [Concomitant]
     Dosage: 81 MG DAILY
     Route: 048
  7. LANTUS [Concomitant]
  8. PROCRIT [Concomitant]
     Dosage: 10,000 UNITS WEEKLY
     Route: 058
  9. MAGNEVIST [Suspect]
     Indication: ANGIOGRAM
     Dosage: UNK UNK, ONCE
     Dates: start: 20030913, end: 20030913
  10. MULTIHANCE [Suspect]
     Indication: NUCLEAR MAGNETIC RESONANCE IMAGING
     Route: 042
     Dates: start: 20080304, end: 20080304
  11. DIOVAN [Concomitant]
     Dosage: 160 MG DAILY
     Route: 048
  12. COREG [Concomitant]
     Indication: HYPERTENSION
     Dosage: 3.125 MG DAILY
     Route: 048
  13. RENAGEL [Concomitant]
     Dosage: 800 MG 3 TABLETS THREE TIMES A DAY WITH MEALS
     Route: 048
  14. CLONIDINE [Concomitant]
     Dosage: 0.1 MG, BID
     Route: 048
  15. ALTACE [Concomitant]
     Dosage: 10 MG DAILY
     Route: 048
  16. PROHANCE [Suspect]
     Indication: NUCLEAR MAGNETIC RESONANCE IMAGING
     Dates: start: 20071109, end: 20071109
  17. HUMALOG [Concomitant]
  18. AMITRIPTLINE HYDROCHLORIDE TAB [Concomitant]
     Dosage: 25 MG, HS
     Route: 048
  19. PHOSLO [Concomitant]
     Dosage: 667 MG 2 TABLETS THREE TIMES A DAY WITH MEALS
     Route: 048
  20. SENSIPAR [Concomitant]
     Dosage: 30 MG DAILY
     Route: 048
  21. FOSRENOL [Concomitant]
     Dosage: 500 MG DAILY
     Route: 048

REACTIONS (18)
  - SCAR [None]
  - SKIN INDURATION [None]
  - SKIN EXFOLIATION [None]
  - GENERAL PHYSICAL HEALTH DETERIORATION [None]
  - JOINT RANGE OF MOTION DECREASED [None]
  - JOINT STIFFNESS [None]
  - EXCORIATION [None]
  - PAIN [None]
  - MOBILITY DECREASED [None]
  - MUSCULAR WEAKNESS [None]
  - ABASIA [None]
  - SKIN HYPERTROPHY [None]
  - PIGMENTATION DISORDER [None]
  - NEPHROGENIC SYSTEMIC FIBROSIS [None]
  - DEFORMITY [None]
  - JOINT CONTRACTURE [None]
  - MUSCULOSKELETAL STIFFNESS [None]
  - SKIN ULCER [None]
